FAERS Safety Report 19831900 (Version 1)
Quarter: 2021Q3

REPORT INFORMATION
  Report Type: Spontaneous
  Country: US (occurrence: US)
  Receive Date: 20210915
  Receipt Date: 20210915
  Transmission Date: 20211014
  Serious: Yes (Other)
  Sender: FDA-Public Use
  Company Number: US-ROCHE-2910797

PATIENT
  Sex: Female

DRUGS (3)
  1. XOLAIR [Suspect]
     Active Substance: OMALIZUMAB
  2. XOLAIR [Suspect]
     Active Substance: OMALIZUMAB
     Indication: RHEUMATOID ARTHRITIS
     Dosage: 150 MG EVERY 4 WEEKS
     Route: 058
     Dates: start: 202103
  3. XOLAIR [Suspect]
     Active Substance: OMALIZUMAB

REACTIONS (1)
  - Pneumonia [Unknown]
